FAERS Safety Report 10224320 (Version 1)
Quarter: 2014Q2

REPORT INFORMATION
  Report Type: Spontaneous
  Country: US (occurrence: US)
  Receive Date: 20140609
  Receipt Date: 20140609
  Transmission Date: 20141212
  Serious: No
  Sender: FDA-Public Use
  Company Number: US-PFIZER INC-2014155214

PATIENT
  Sex: Female

DRUGS (2)
  1. PREMARIN [Suspect]
     Indication: ANGIOPATHY
     Dosage: UNK
     Route: 048
  2. ESTRADIOL [Suspect]
     Dosage: UNK

REACTIONS (1)
  - Drug ineffective [Unknown]
